FAERS Safety Report 8146471-9 (Version None)
Quarter: 2012Q1

REPORT INFORMATION
  Report Type: 
  Country: None (occurrence: None)
  Receive Date: 20120217
  Receipt Date: 20120117
  Transmission Date: 20120608
  Serious: No
  Sender: FDA-Public Use
  Company Number: US-ABBOTT-12P-163-0894363-00

PATIENT
  Sex: Female
  Weight: 77.18 kg

DRUGS (4)
  1. PAXIL [Concomitant]
     Indication: PRODUCT USED FOR UNKNOWN INDICATION
  2. METOPROLOL TARTRATE [Concomitant]
     Indication: PRODUCT USED FOR UNKNOWN INDICATION
  3. BUTALB ACETAMIN CAFF [Concomitant]
     Indication: MIGRAINE
  4. SIMCOR [Suspect]
     Indication: BLOOD TRIGLYCERIDES INCREASED
     Dosage: 500/40MG EVERY NIGHT
     Dates: start: 20110501

REACTIONS (3)
  - PRURITUS [None]
  - ERYTHEMA [None]
  - FLUSHING [None]
